FAERS Safety Report 17585011 (Version 1)
Quarter: 2020Q1

REPORT INFORMATION
  Report Type: Spontaneous
  Country: US (occurrence: US)
  Receive Date: 20200324
  Receipt Date: 20200324
  Transmission Date: 20200409
  Serious: No
  Sender: FDA-Public Use
  Company Number: None

PATIENT
  Age: 90 Year
  Sex: Male

DRUGS (2)
  1. TROSPIUM (TROSPIM CL 20MG TAB) [Suspect]
     Active Substance: TROSPIUM CHLORIDE
     Dates: start: 20191024, end: 20191112
  2. TROSPIUM (TROSPIM CL 20MG TAB) [Suspect]
     Active Substance: TROSPIUM CHLORIDE
     Dosage: ?          OTHER DOSE:500/125;?
     Dates: start: 20191101, end: 20191108

REACTIONS (2)
  - Urinary tract infection [None]
  - Seizure [None]

NARRATIVE: CASE EVENT DATE: 20191112
